FAERS Safety Report 23709700 (Version 1)
Quarter: 2024Q2

REPORT INFORMATION
  Report Type: Spontaneous
  Country: US (occurrence: US)
  Receive Date: 20240404
  Receipt Date: 20240404
  Transmission Date: 20240716
  Serious: Yes (Hospitalization, Other)
  Sender: FDA-Public Use
  Company Number: US-BRISTOL-MYERS SQUIBB COMPANY-2024-053302

PATIENT
  Age: 54 Year
  Sex: Female
  Weight: 60.33 kg

DRUGS (1)
  1. REVLIMID [Suspect]
     Active Substance: LENALIDOMIDE
     Indication: Plasma cell myeloma
     Dosage: 21D IN THE MORNING
     Route: 048
     Dates: start: 20240201

REACTIONS (5)
  - Tremor [Unknown]
  - Paraesthesia [Unknown]
  - Taste disorder [Unknown]
  - Thrombosis [Unknown]
  - Hypoaesthesia [Unknown]
